FAERS Safety Report 9768670 (Version 2)
Quarter: 2014Q1

REPORT INFORMATION
  Report Type: Report from Study
  Country: DE (occurrence: DE)
  Receive Date: 20131218
  Receipt Date: 20140116
  Transmission Date: 20141002
  Serious: Yes (Hospitalization, Disabling)
  Sender: FDA-Public Use
  Company Number: DE-BIOGENIDEC-2013BI119512

PATIENT
  Age: 52 Year
  Sex: Female
  Weight: 67 kg

DRUGS (2)
  1. TYSABRI [Suspect]
     Indication: MULTIPLE SCLEROSIS
     Route: 042
     Dates: start: 20100511, end: 20130807
  2. CITALOPRAM [Concomitant]
     Indication: DEPRESSION
     Dates: start: 20090910

REACTIONS (2)
  - Cerebral infarction [Not Recovered/Not Resolved]
  - Off label use [Recovered/Resolved]
